FAERS Safety Report 6998677-X (Version None)
Quarter: 2010Q3

REPORT INFORMATION
  Report Type: 
  Country: None (occurrence: None)
  Receive Date: 20100920
  Receipt Date: 20070613
  Transmission Date: 20110219
  Serious: Yes (Hospitalization, Other)
  Sender: FDA-Public Use
  Company Number: US-ASTRAZENECA-2006UW11837

PATIENT
  Age: 6469 Day
  Sex: Female
  Weight: 46.3 kg

DRUGS (7)
  1. SEROQUEL [Suspect]
     Indication: SCHIZOPHRENIA
     Dosage: 75-300 MG
     Route: 048
     Dates: start: 20040309
  2. SEROQUEL [Suspect]
     Indication: ILLOGICAL THINKING
     Dosage: 75-300 MG
     Route: 048
     Dates: start: 20040309
  3. SEROQUEL [Suspect]
     Indication: AFFECTIVE DISORDER
     Dosage: 75-300 MG
     Route: 048
     Dates: start: 20040309
  4. ZYPREXA [Suspect]
     Dates: start: 20011201, end: 20050101
  5. GEODON [Suspect]
     Dates: start: 20030101
  6. DEPAKOTE [Concomitant]
     Route: 048
     Dates: start: 20041215
  7. MIRTAZAPINE [Concomitant]
     Dosage: 15-30 MG
     Route: 048
     Dates: start: 20071127

REACTIONS (3)
  - DIABETES MELLITUS [None]
  - DIABETIC KETOACIDOSIS [None]
  - HYPERGLYCAEMIA [None]
